FAERS Safety Report 8619993-1 (Version None)
Quarter: 2012Q3

REPORT INFORMATION
  Report Type: 
  Country: None (occurrence: None)
  Receive Date: 20120816
  Receipt Date: 20120816
  Transmission Date: 20120928
  Serious: Yes (Disabling, Other)
  Sender: FDA-Public Use
  Company Number: None

PATIENT
  Sex: Male
  Weight: 88.4514 kg

DRUGS (1)
  1. PROSCAR [Suspect]
     Indication: BENIGN PROSTATIC HYPERPLASIA
     Dosage: 5 MG PER DAY PO
     Route: 048
     Dates: start: 20090415, end: 20111015

REACTIONS (3)
  - SEXUAL DYSFUNCTION [None]
  - NERVOUS SYSTEM DISORDER [None]
  - ILL-DEFINED DISORDER [None]
